FAERS Safety Report 5639875-7 (Version None)
Quarter: 2008Q1

REPORT INFORMATION
  Report Type: 
  Country: None (occurrence: None)
  Receive Date: 20080227
  Receipt Date: 20080226
  Transmission Date: 20080703
  Serious: Yes (Hospitalization)
  Sender: FDA-Public Use
  Company Number: CA-JNJFOC-20080203905

PATIENT
  Sex: Female
  Weight: 45.36 kg

DRUGS (4)
  1. FENTANYL TRANSDERMAL SYSTEM [Suspect]
     Indication: SCOLIOSIS
     Route: 062
  2. FENTANYL TRANSDERMAL SYSTEM [Suspect]
     Indication: ARTHRALGIA
     Route: 062
  3. FENTANYL TRANSDERMAL SYSTEM [Suspect]
     Indication: BACK PAIN
     Route: 062
  4. CELEBREX [Suspect]
     Indication: ARTHRALGIA
     Route: 048

REACTIONS (3)
  - ARTHRALGIA [None]
  - HAEMATEMESIS [None]
  - MYOCARDIAL INFARCTION [None]
